FAERS Safety Report 16132676 (Version 2)
Quarter: 2019Q2

REPORT INFORMATION
  Report Type: Spontaneous
  Country: US (occurrence: US)
  Receive Date: 20190329
  Receipt Date: 20190502
  Transmission Date: 20190711
  Serious: No
  Sender: FDA-Public Use
  Company Number: US-ASTRAZENECA-2019SE37355

PATIENT
  Age: 55 Year
  Sex: Female
  Weight: 85.7 kg

DRUGS (1)
  1. PULMICORT FLEXHALER [Suspect]
     Active Substance: BUDESONIDE
     Indication: ASTHMA
     Route: 055
     Dates: start: 20190215

REACTIONS (5)
  - Feeling abnormal [Unknown]
  - Wrong technique in device usage process [Unknown]
  - Taste disorder [Unknown]
  - Device failure [Unknown]
  - Product dose omission [Unknown]

NARRATIVE: CASE EVENT DATE: 2019
